FAERS Safety Report 21401191 (Version 1)
Quarter: 2022Q4

REPORT INFORMATION
  Report Type: Spontaneous
  Country: CN (occurrence: CN)
  Receive Date: 20221003
  Receipt Date: 20221003
  Transmission Date: 20230113
  Serious: Yes (Hospitalization, Other)
  Sender: FDA-Public Use
  Company Number: CN-Axellia-004442

PATIENT
  Age: 43 Year
  Sex: Male

DRUGS (4)
  1. POLYMYXIN B [Suspect]
     Active Substance: POLYMYXIN B
     Indication: Enterobacter infection
     Dosage: IVGTT
  2. TIGECYCLINE [Concomitant]
     Active Substance: TIGECYCLINE
     Indication: Enterobacter infection
     Dosage: Q12 H IVGTT
  3. GANCICLOVIR [Concomitant]
     Active Substance: GANCICLOVIR
     Indication: Pneumocystis jirovecii pneumonia
     Route: 048
  4. SULFAMETHOXAZOLE\TRIMETHOPRIM [Concomitant]
     Active Substance: SULFAMETHOXAZOLE\TRIMETHOPRIM
     Indication: Pneumocystis jirovecii pneumonia
     Dosage: 0.96 G TID PO
     Route: 048

REACTIONS (1)
  - Respiratory failure [Recovered/Resolved]
